FAERS Safety Report 8468784-3 (Version None)
Quarter: 2012Q2

REPORT INFORMATION
  Report Type: 
  Country: None (occurrence: None)
  Receive Date: 20120626
  Receipt Date: 20120611
  Transmission Date: 20120825
  Serious: Yes (Congenital Anomaly)
  Sender: FDA-Public Use
  Company Number: DE-ROCHE-1081853

PATIENT

DRUGS (5)
  1. FOSFOMYCIN [Concomitant]
     Indication: PRODUCT USED FOR UNKNOWN INDICATION
     Dosage: AT WEEK 14
  2. CELLCEPT [Suspect]
     Indication: RENAL TRANSPLANT
  3. PREDNISONE [Concomitant]
     Indication: PRODUCT USED FOR UNKNOWN INDICATION
  4. TACROLIMUS [Concomitant]
     Indication: PRODUCT USED FOR UNKNOWN INDICATION
  5. AZATHIOPRINE [Concomitant]
     Indication: PRODUCT USED FOR UNKNOWN INDICATION

REACTIONS (3)
  - MATERNAL EXPOSURE TIMING UNSPECIFIED [None]
  - AUTISM [None]
  - CONGENITAL HYDRONEPHROSIS [None]
